FAERS Safety Report 9437411 (Version 1)
Quarter: 2013Q3

REPORT INFORMATION
  Report Type: Report from Study
  Country: BR (occurrence: BR)
  Receive Date: 20130802
  Receipt Date: 20130802
  Transmission Date: 20140515
  Serious: Yes (Other)
  Sender: FDA-Public Use
  Company Number: BR-ABBOTT-13P-020-1054825-00

PATIENT
  Age: 34 Year
  Sex: Female
  Weight: 50 kg

DRUGS (2)
  1. HUMIRA [Suspect]
     Indication: CROHN^S DISEASE
     Route: 058
     Dates: start: 20120410, end: 201209
  2. MEZALAMINE [Concomitant]
     Indication: CROHN^S DISEASE
     Route: 048
     Dates: start: 2011

REACTIONS (4)
  - Tuberculosis [Recovered/Resolved]
  - Weight decreased [Unknown]
  - Malaise [Unknown]
  - Immunodeficiency [Unknown]
